FAERS Safety Report 11469126 (Version 1)
Quarter: 2015Q3

REPORT INFORMATION
  Report Type: Spontaneous
  Country: CA (occurrence: CA)
  Receive Date: 20150908
  Receipt Date: 20150908
  Transmission Date: 20151125
  Serious: Yes (Hospitalization, Disabling)
  Sender: FDA-Public Use
  Company Number: CA-TEVA-591173ACC

PATIENT
  Age: 25 Year
  Sex: Male
  Weight: 83 kg

DRUGS (4)
  1. TETRABENAZINE. [Concomitant]
     Active Substance: TETRABENAZINE
  2. BENZTROPINE [Concomitant]
     Active Substance: BENZTROPINE
  3. VENLAFAXINE XR [Suspect]
     Active Substance: VENLAFAXINE HYDROCHLORIDE
     Indication: DEPRESSION
     Route: 065
  4. BACLOFEN. [Concomitant]
     Active Substance: BACLOFEN

REACTIONS (2)
  - Drug ineffective [Unknown]
  - Unresponsive to stimuli [Unknown]
